FAERS Safety Report 19984240 (Version 2)
Quarter: 2021Q4

REPORT INFORMATION
  Report Type: Report from Study
  Country: IT (occurrence: IT)
  Receive Date: 20211022
  Receipt Date: 20211209
  Transmission Date: 20220303
  Serious: Yes (Hospitalization)
  Sender: FDA-Public Use
  Company Number: None

PATIENT
  Age: 17 Year
  Sex: Male

DRUGS (1)
  1. SERTRALINE [Suspect]
     Active Substance: SERTRALINE HYDROCHLORIDE
     Dosage: TOTAL, 84 TABLETS OF SERTRALINE 50MG WITH ANTICONSERVATIVE INTENT
     Route: 048
     Dates: start: 20211003, end: 20211003

REACTIONS (4)
  - Trismus [Unknown]
  - Muscle rigidity [Unknown]
  - Toxicity to various agents [Unknown]
  - Drug abuse [Unknown]

NARRATIVE: CASE EVENT DATE: 20211003
